FAERS Safety Report 7356250-8 (Version None)
Quarter: 2011Q1

REPORT INFORMATION
  Report Type: 
  Country: None (occurrence: None)
  Receive Date: 20110316
  Receipt Date: 20110309
  Transmission Date: 20110831
  Serious: Yes (Hospitalization)
  Sender: FDA-Public Use
  Company Number: ES-CEPHALON-2011001205

PATIENT
  Sex: Male

DRUGS (6)
  1. RITUXIMAB [Suspect]
     Indication: NON-HODGKIN'S LYMPHOMA STAGE IV
     Route: 042
     Dates: start: 20110201, end: 20110301
  2. BENDAMUSTINE HCL [Suspect]
     Indication: NON-HODGKIN'S LYMPHOMA STAGE IV
     Route: 041
     Dates: start: 20110209, end: 20110302
  3. SEGURIL [Concomitant]
  4. OMNIC [Concomitant]
  5. ZYLORIC [Concomitant]
  6. ENALAPRIL MALEATE [Concomitant]

REACTIONS (1)
  - ATRIAL FLUTTER [None]
